FAERS Safety Report 21889781 (Version 1)
Quarter: 2023Q1

REPORT INFORMATION
  Report Type: Spontaneous
  Country: PT (occurrence: PT)
  Receive Date: 20230120
  Receipt Date: 20230120
  Transmission Date: 20230418
  Serious: Yes (Hospitalization, Other)
  Sender: FDA-Public Use
  Company Number: None

PATIENT
  Age: 82 Year
  Sex: Female

DRUGS (6)
  1. ROSUVASTATIN CALCIUM [Interacting]
     Active Substance: ROSUVASTATIN CALCIUM
     Indication: Product used for unknown indication
     Dosage: 10 MG, QD ONCE A DAY
  2. METFORMIN [Interacting]
     Active Substance: METFORMIN HYDROCHLORIDE
     Indication: Type 2 diabetes mellitus
     Dosage: STRENGTH: 1000 MG,  BID
  3. SITAGLIPTIN [Interacting]
     Active Substance: SITAGLIPTIN
     Indication: Type 2 diabetes mellitus
     Dosage: 100 MILLIGRAM, QD
  4. INDAPAMIDE [Interacting]
     Active Substance: INDAPAMIDE
     Indication: Type 2 diabetes mellitus
     Dosage: STRENGTH: 1.5 MG, QD , ONCE A DAY
  5. SITAGLIPTIN PHOSPHATE [Interacting]
     Active Substance: SITAGLIPTIN PHOSPHATE
     Indication: Type 2 diabetes mellitus
  6. EMPAGLIFLOZIN [Interacting]
     Active Substance: EMPAGLIFLOZIN
     Indication: Type 2 diabetes mellitus
     Dosage: 25 MG, QD

REACTIONS (14)
  - Decreased appetite [Unknown]
  - Diabetic ketoacidosis [Recovering/Resolving]
  - Drug interaction [Unknown]
  - Dehydration [Unknown]
  - Euglycaemic diabetic ketoacidosis [Recovered/Resolved]
  - Dry skin [Unknown]
  - Breast cancer [Unknown]
  - Dysphagia [Unknown]
  - Blood lactic acid increased [Unknown]
  - Oliguria [Recovering/Resolving]
  - Acetonaemia [Recovered/Resolved]
  - Nausea [Recovering/Resolving]
  - Pallor [Unknown]
  - Vomiting [Recovering/Resolving]
